FAERS Safety Report 14512138 (Version 1)
Quarter: 2018Q1

REPORT INFORMATION
  Report Type: Spontaneous
  Country: US (occurrence: US)
  Receive Date: 20180209
  Receipt Date: 20180209
  Transmission Date: 20180509
  Serious: Yes (Other)
  Sender: FDA-Public Use
  Company Number: US-PFIZER INC-2018052081

PATIENT
  Sex: Female

DRUGS (1)
  1. CHILDRENS ADVIL [Suspect]
     Active Substance: IBUPROFEN
     Dosage: UNK
     Dates: end: 20180205

REACTIONS (2)
  - Abdominal pain upper [Not Recovered/Not Resolved]
  - Coeliac disease [Not Recovered/Not Resolved]
